FAERS Safety Report 17472688 (Version 1)
Quarter: 2020Q1

REPORT INFORMATION
  Report Type: Spontaneous
  Country: US (occurrence: US)
  Receive Date: 20200227
  Receipt Date: 20200227
  Transmission Date: 20200409
  Serious: Yes (Life-Threatening, Hospitalization, Disabling)
  Sender: FDA-Public Use
  Company Number: None

PATIENT
  Age: 45 Year
  Sex: Female
  Weight: 70 kg

DRUGS (8)
  1. MG GLYCINATE [Concomitant]
  2. VIT D [Concomitant]
     Active Substance: VITAMIN D NOS
  3. XANAX [Concomitant]
     Active Substance: ALPRAZOLAM
  4. VITAMIN E [Concomitant]
     Active Substance: .ALPHA.-TOCOPHEROL
  5. CIPROFLOXACIN. [Suspect]
     Active Substance: CIPROFLOXACIN
     Indication: MASTOIDITIS
     Dosage: ?          QUANTITY:2 CAPSULE(S);?
     Route: 048
     Dates: start: 20181101, end: 20181102
  6. MG THREONATE [Concomitant]
  7. VITAMIN B COMPLEX [Concomitant]
     Active Substance: CYANOCOBALAMIN\DEXPANTHENOL\NIACINAMIDE\PYRIDOXINE HYDROCHLORIDE\RIBOFLAVIN 5^-PHOSPHATE SODIUM\THIAMINE HYDROCHLORIDE\VITAMIN B COMPLEX
  8. PQ10 [Concomitant]

REACTIONS (8)
  - Anxiety [None]
  - Hepatic pain [None]
  - Dyskinesia [None]
  - Tendon pain [None]
  - Tinnitus [None]
  - Insomnia [None]
  - Disability [None]
  - Heart rate increased [None]

NARRATIVE: CASE EVENT DATE: 20181102
